FAERS Safety Report 9494783 (Version 1)
Quarter: 2013Q3

REPORT INFORMATION
  Report Type: Spontaneous
  Country: US (occurrence: US)
  Receive Date: 20130903
  Receipt Date: 20130903
  Transmission Date: 20140515
  Serious: No
  Sender: FDA-Public Use
  Company Number: US-PFIZER INC-2013252301

PATIENT
  Age: 53 Year
  Sex: Male
  Weight: 74.38 kg

DRUGS (3)
  1. LYRICA [Suspect]
     Indication: FIBROMYALGIA
     Dosage: 100 MG, 3X/DAY
     Route: 048
  2. IBUPROFEN [Concomitant]
     Dosage: UNK
  3. CENTRUM SILVER [Concomitant]
     Dosage: UNK, 1X/DAY

REACTIONS (1)
  - Blood cholesterol increased [Unknown]
